FAERS Safety Report 11835454 (Version 2)
Quarter: 2015Q4

REPORT INFORMATION
  Report Type: Other
  Country: US (occurrence: US)
  Receive Date: 20151215
  Receipt Date: 20151231
  Transmission Date: 20160305
  Serious: Yes (Hospitalization)
  Sender: FDA-Public Use
  Company Number: US-NATCO PHARMA LIMITED-1045479

PATIENT
  Age: 79 Year
  Sex: Female
  Weight: 68.18 kg

DRUGS (1)
  1. ANASTROZOLE TABLETS, 1MG [Suspect]
     Active Substance: ANASTROZOLE
     Indication: BREAST CANCER
     Route: 048
     Dates: start: 20151008

REACTIONS (2)
  - Hypertension [Unknown]
  - Haemorrhagic stroke [Recovering/Resolving]

NARRATIVE: CASE EVENT DATE: 20151030
